FAERS Safety Report 6805363-5 (Version None)
Quarter: 2010Q2

REPORT INFORMATION
  Report Type: 
  Country: None (occurrence: None)
  Receive Date: 20100628
  Receipt Date: 20071026
  Transmission Date: 20101027
  Serious: No
  Sender: FDA-Public Use
  Company Number: US-PFIZER INC-2007091244

PATIENT
  Age: 70 Year

DRUGS (2)
  1. XALATAN [Suspect]
  2. ALPHAGAN [Suspect]

REACTIONS (3)
  - BLOOD PRESSURE INCREASED [None]
  - EYE IRRITATION [None]
  - VISION BLURRED [None]
